FAERS Safety Report 6194933-6 (Version None)
Quarter: 2009Q2

REPORT INFORMATION
  Report Type: 
  Country: None (occurrence: None)
  Receive Date: 20090515
  Receipt Date: 20090515
  Transmission Date: 20091009
  Serious: Yes (Hospitalization)
  Sender: FDA-Public Use
  Company Number: None

PATIENT
  Sex: Male

DRUGS (14)
  1. WARFARIN SODIUM [Suspect]
     Indication: ATRIAL FIBRILLATION
     Dosage: 7.5 MG DAILY PO
     Route: 048
  2. ISOSORBIDE [Concomitant]
  3. AMIODARONE [Concomitant]
  4. COZAAR [Concomitant]
  5. NITROSTAT [Concomitant]
  6. CARVEDILOL [Concomitant]
  7. LASIS [Concomitant]
  8. CADUET` [Concomitant]
  9. M.V.I. [Concomitant]
  10. FLOMAX [Concomitant]
  11. LUPRON [Concomitant]
  12. ZOMETA [Concomitant]
  13. VICODIN OCCUVITE [Concomitant]
  14. CITRACAL [Concomitant]

REACTIONS (1)
  - COAGULOPATHY [None]
